FAERS Safety Report 6577675-4 (Version None)
Quarter: 2010Q1

REPORT INFORMATION
  Report Type: 
  Country: None (occurrence: None)
  Receive Date: 20100211
  Receipt Date: 20100203
  Transmission Date: 20100710
  Serious: Yes (Hospitalization, Other)
  Sender: FDA-Public Use
  Company Number: PHHO2009BR12614

PATIENT
  Sex: Male

DRUGS (3)
  1. ZOLEDRONATE T29581+SOLINJ+BM [Suspect]
     Indication: PROSTATE CANCER
     Dosage: 3.5MG 4 WKLY
     Route: 042
     Dates: start: 20090520, end: 20090909
  2. CALCIUM [Concomitant]
  3. VITAMIN D [Suspect]

REACTIONS (7)
  - ABDOMINAL PAIN UPPER [None]
  - DECREASED APPETITE [None]
  - DYSPHAGIA [None]
  - PNEUMONIA [None]
  - PYREXIA [None]
  - URINARY RETENTION [None]
  - URINARY TRACT DISORDER [None]
